FAERS Safety Report 21357881 (Version 3)
Quarter: 2023Q2

REPORT INFORMATION
  Report Type: Report from Study
  Country: US (occurrence: US)
  Receive Date: 20220921
  Receipt Date: 20230403
  Transmission Date: 20230722
  Serious: No
  Sender: FDA-Public Use
  Company Number: None

PATIENT
  Age: 34 Year
  Sex: Female

DRUGS (9)
  1. HUMIRA [Suspect]
     Active Substance: ADALIMUMAB
     Indication: Crohn^s disease
     Dosage: CITRATE FREE
     Route: 058
     Dates: start: 202203, end: 202203
  2. HUMIRA [Suspect]
     Active Substance: ADALIMUMAB
     Dosage: CITRATE FREE, COVID INFECTION CESSATION DATE 2022
     Route: 058
     Dates: start: 202203
  3. HUMIRA [Suspect]
     Active Substance: ADALIMUMAB
     Dosage: CITRATE FREE
     Route: 058
     Dates: start: 20210901
  4. HUMIRA [Suspect]
     Active Substance: ADALIMUMAB
     Dosage: CITRATE FREE, DAY 0
     Route: 058
     Dates: start: 202109, end: 202109
  5. HUMIRA [Suspect]
     Active Substance: ADALIMUMAB
     Dosage: CITRATE FREE, DAY 15, START AND STOP DATE 2021
     Route: 058
  6. PROTONIX [Concomitant]
     Active Substance: PANTOPRAZOLE SODIUM
     Indication: Product used for unknown indication
     Dates: start: 20221202
  7. ZOLOFT [Concomitant]
     Active Substance: SERTRALINE HYDROCHLORIDE
     Indication: Depression
     Dates: start: 20200302
  8. AMITRIPTYLINE [Concomitant]
     Active Substance: AMITRIPTYLINE
     Indication: Product used for unknown indication
     Route: 065
  9. IMITREX [Concomitant]
     Active Substance: SUMATRIPTAN SUCCINATE
     Indication: Product used for unknown indication
     Route: 065

REACTIONS (20)
  - Animal scratch [Unknown]
  - Fatigue [Unknown]
  - Asthenia [Recovering/Resolving]
  - Frequent bowel movements [Unknown]
  - Loss of personal independence in daily activities [Unknown]
  - Feeling hot [Not Recovered/Not Resolved]
  - Off label use [Unknown]
  - Insomnia [Unknown]
  - Anxiety [Unknown]
  - Depressed mood [Unknown]
  - Flatulence [Unknown]
  - Abdominal pain upper [Unknown]
  - Arthralgia [Unknown]
  - Diarrhoea [Unknown]
  - Pain [Recovering/Resolving]
  - COVID-19 [Recovered/Resolved]
  - Night sweats [Unknown]
  - Feeling hot [Recovered/Resolved]
  - Erythema [Unknown]
  - Feeling hot [Unknown]

NARRATIVE: CASE EVENT DATE: 20220701
